FAERS Safety Report 19308698 (Version 1)
Quarter: 2021Q2

REPORT INFORMATION
  Report Type: Spontaneous
  Country: US (occurrence: US)
  Receive Date: 20210526
  Receipt Date: 20210526
  Transmission Date: 20210717
  Serious: Yes (Hospitalization)
  Sender: FDA-Public Use
  Company Number: None

PATIENT
  Sex: Female
  Weight: 54.9 kg

DRUGS (11)
  1. ATORVASTATIN 20MG TAB [Concomitant]
     Active Substance: ATORVASTATIN
  2. TAFINLAR [Suspect]
     Active Substance: DABRAFENIB MESYLATE
     Indication: MALIGNANT MELANOMA
     Route: 048
     Dates: start: 20201215
  3. MEKINIST [Suspect]
     Active Substance: TRAMETINIB DIMETHYL SULFOXIDE
     Indication: MALIGNANT MELANOMA
     Route: 048
     Dates: start: 20201215
  4. METFORMIN TAB [Concomitant]
  5. LANTUS [Concomitant]
     Active Substance: INSULIN GLARGINE
  6. OMEGA 3 CAPS [Concomitant]
  7. CENTRUM TAB [Concomitant]
  8. MAG?OX 400MG TAB [Concomitant]
  9. CALCIUM+VITAMIN D TAB [Concomitant]
  10. VIRT?PHOS 250 TAB [Concomitant]
  11. ZOFRAN 4 MG TAB [Concomitant]

REACTIONS (3)
  - Seizure [None]
  - Nausea [None]
  - Brain oedema [None]
